FAERS Safety Report 7691728-9 (Version None)
Quarter: 2011Q3

REPORT INFORMATION
  Report Type: 
  Country: None (occurrence: None)
  Receive Date: 20110818
  Receipt Date: 20110816
  Transmission Date: 20111222
  Serious: Yes (Other)
  Sender: FDA-Public Use
  Company Number: CA-GLAXOSMITHKLINE-A0941148A

PATIENT
  Sex: Female

DRUGS (5)
  1. TYKERB [Suspect]
     Indication: BREAST CANCER METASTATIC
     Dosage: 1250MG PER DAY
     Route: 048
     Dates: start: 20110413
  2. CARVEDILOL [Concomitant]
  3. EFFEXOR [Concomitant]
  4. ALTACE [Concomitant]
  5. XELODA [Concomitant]

REACTIONS (1)
  - NEOPLASM MALIGNANT [None]
